FAERS Safety Report 7452321-6 (Version None)
Quarter: 2011Q2

REPORT INFORMATION
  Report Type: 
  Country: None (occurrence: None)
  Receive Date: 20110502
  Receipt Date: 20091122
  Transmission Date: 20111010
  Serious: Yes (Death, Hospitalization, Other)
  Sender: FDA-Public Use
  Company Number: US-BAYER-201041985NA

PATIENT
  Age: 80 Year
  Sex: Female
  Weight: 81.5 kg

DRUGS (14)
  1. FRESH FROZEN PLASMA [Concomitant]
     Dosage: 1 U, UNK
     Dates: start: 20061025
  2. PLATELETS [Concomitant]
     Dosage: 2 U, UNK
     Dates: start: 20061031
  3. SPIRONOLACTONE [Concomitant]
     Dosage: 50 MG, QD
     Route: 048
  4. PROTAMINE SULFATE [Concomitant]
     Dosage: 280 MG, UNK
     Route: 042
     Dates: start: 20061025
  5. INSULIN [Concomitant]
     Dosage: UNK
     Route: 042
     Dates: start: 20061025
  6. TRASYLOL [Suspect]
     Indication: AORTIC VALVE REPLACEMENT
     Dosage: 200 ML LOADING DOSE FOLLOWED BY 50 ML / HOUR DRIP
     Route: 042
     Dates: start: 20061025, end: 20061025
  7. METFORMIN [Concomitant]
     Dosage: 500 MG, BID
     Route: 048
     Dates: start: 20030101
  8. LISINOPRIL [Concomitant]
     Dosage: 10 MG, QD
     Route: 048
     Dates: start: 20030101
  9. HEPARIN [Concomitant]
     Dosage: 35,000 UNITS
     Route: 042
     Dates: start: 20061025
  10. VERSED [Concomitant]
     Dosage: UNK
     Route: 042
     Dates: start: 20061025
  11. FUROSEMIDE [Concomitant]
     Dosage: 20 MG, QD
     Route: 048
  12. ALBUMIN (HUMAN) [Concomitant]
     Dosage: 12.5 G, UNK
     Route: 042
     Dates: start: 20061025
  13. PLATELETS [Concomitant]
     Dosage: 1 U, UNK
     Dates: start: 20061025
  14. RED BLOOD CELLS [Concomitant]
     Dosage: 3 U, UNK
     Dates: start: 20061030

REACTIONS (11)
  - MULTI-ORGAN FAILURE [None]
  - UNEVALUABLE EVENT [None]
  - EMOTIONAL DISTRESS [None]
  - FEAR [None]
  - STRESS [None]
  - ANXIETY [None]
  - PAIN [None]
  - INJURY [None]
  - RENAL INJURY [None]
  - RENAL FAILURE ACUTE [None]
  - RENAL IMPAIRMENT [None]
